FAERS Safety Report 9258536 (Version 1)
Quarter: 2013Q2

REPORT INFORMATION
  Report Type: Spontaneous
  Country: US (occurrence: None)
  Receive Date: 20130425
  Receipt Date: 20130425
  Transmission Date: 20140414
  Serious: Yes (Life-Threatening)
  Sender: FDA-Public Use
  Company Number: None

PATIENT
  Age: 19 Year
  Sex: Male
  Weight: 108.41 kg

DRUGS (2)
  1. LEVETIRACETAM [Suspect]
     Indication: PARTIAL SEIZURES
     Route: 048
     Dates: start: 201204
  2. LEVETIRACETAM [Suspect]
     Indication: STATUS EPILEPTICUS
     Route: 048
     Dates: start: 201204

REACTIONS (2)
  - Convulsion [None]
  - Condition aggravated [None]
